FAERS Safety Report 4796378-X (Version None)
Quarter: 2005Q4

REPORT INFORMATION
  Report Type: 
  Country: None (occurrence: None)
  Receive Date: 20051007
  Receipt Date: 20050928
  Transmission Date: 20060501
  Serious: Yes (Death)
  Sender: FDA-Public Use
  Company Number: 2005-09-1747

PATIENT
  Age: 58 Year
  Sex: Male
  Weight: 65 kg

DRUGS (2)
  1. PEG-INTRON [Suspect]
     Indication: HEPATITIS C
     Dosage: 80 MCG QW SUBCUTANEOUS
     Route: 058
     Dates: start: 20050527, end: 20050903
  2. REBETOL [Suspect]
     Indication: HEPATITIS C
     Dosage: 200-600 MG ORAL
     Route: 048
     Dates: start: 20050527, end: 20050903

REACTIONS (1)
  - DEATH [None]
